FAERS Safety Report 24864325 (Version 5)
Quarter: 2025Q2

REPORT INFORMATION
  Report Type: Spontaneous
  Country: JP (occurrence: JP)
  Receive Date: 20250120
  Receipt Date: 20250521
  Transmission Date: 20250716
  Serious: Yes (Other)
  Sender: BRISTOL-MYERS SQUIBB COMPANY
  Company Number: JP-BRISTOL-MYERS SQUIBB COMPANY-2025-006521

PATIENT
  Age: 73 Year
  Sex: Female

DRUGS (5)
  1. YERVOY [Suspect]
     Active Substance: IPILIMUMAB
     Indication: Renal cell carcinoma
     Route: 041
     Dates: start: 20181116
  2. OPDIVO [Suspect]
     Active Substance: NIVOLUMAB
     Indication: Renal cell carcinoma
     Route: 041
     Dates: start: 20181116
  3. CABOZANTINIB [Suspect]
     Active Substance: CABOZANTINIB
     Indication: Renal cell carcinoma
  4. LENVATINIB [Suspect]
     Active Substance: LENVATINIB
     Indication: Renal cell carcinoma
  5. PEMBROLIZUMAB [Suspect]
     Active Substance: PEMBROLIZUMAB
     Indication: Renal cell carcinoma

REACTIONS (6)
  - Nephrotic syndrome [Unknown]
  - Adrenal insufficiency [Unknown]
  - Hypothyroidism [Unknown]
  - Diarrhoea [Unknown]
  - Decreased appetite [Unknown]
  - Hypertension [Unknown]
